FAERS Safety Report 7887841-3 (Version None)
Quarter: 2011Q4

REPORT INFORMATION
  Report Type: 
  Country: None (occurrence: None)
  Receive Date: 20111102
  Receipt Date: 20111102
  Transmission Date: 20120403
  Serious: Yes (Hospitalization)
  Sender: FDA-Public Use
  Company Number: None

PATIENT
  Age: 65 Year
  Sex: Male
  Weight: 115 kg

DRUGS (1)
  1. RECLAST [Suspect]
     Indication: SPINAL CORD INJURY
     Dosage: 5 MG 1/YR INTRAVENOUS INFUSION
     Route: 042
     Dates: start: 20101213

REACTIONS (1)
  - DECUBITUS ULCER [None]
